FAERS Safety Report 6760426-8 (Version None)
Quarter: 2010Q2

REPORT INFORMATION
  Report Type: 
  Country: None (occurrence: None)
  Receive Date: 20100608
  Receipt Date: 20100525
  Transmission Date: 20101027
  Serious: Yes (Other)
  Sender: FDA-Public Use
  Company Number: PHHY2010AU34365

PATIENT
  Sex: Male

DRUGS (4)
  1. CLOZARIL [Suspect]
     Indication: SCHIZOPHRENIA
     Dosage: UNK
     Dates: start: 20050323
  2. CLOZARIL [Suspect]
     Dosage: 475 MG
  3. CLOZARIL [Suspect]
     Dosage: 500 MG
     Dates: start: 20091201
  4. CLOZARIL [Suspect]
     Dosage: 525 MG
     Dates: start: 20100420

REACTIONS (4)
  - CONDUCTION DISORDER [None]
  - ELECTROCARDIOGRAM QT PROLONGED [None]
  - LEFT VENTRICULAR HYPERTROPHY [None]
  - SINUS TACHYCARDIA [None]
